FAERS Safety Report 8822887 (Version 1)
Quarter: 2012Q4

REPORT INFORMATION
  Report Type: 
  Country: CN (occurrence: CN)
  Receive Date: 20121003
  Receipt Date: 20121003
  Transmission Date: 20130627
  Serious: Yes (Other)
  Sender: FDA-Public Use
  Company Number: CN-JNJFOC-20120913323

PATIENT
  Age: 48 Year
  Sex: Male
  Weight: 83 kg

DRUGS (4)
  1. TYLENOL [Suspect]
     Route: 048
  2. TYLENOL [Suspect]
     Indication: PYREXIA
     Dosage: 650 mg/tablet
     Route: 048
     Dates: start: 20090226, end: 20090303
  3. AMOXICILLIN [Suspect]
     Indication: PYREXIA
     Route: 065
     Dates: start: 20090226
  4. UNSPECIFIED INGREDIENT [Suspect]
     Indication: PYREXIA
     Route: 065
     Dates: start: 20090226

REACTIONS (1)
  - Drug-induced liver injury [Recovered/Resolved]
